FAERS Safety Report 6124697-3 (Version None)
Quarter: 2009Q1

REPORT INFORMATION
  Report Type: 
  Country: None (occurrence: None)
  Receive Date: 20090319
  Receipt Date: 20090309
  Transmission Date: 20090719
  Serious: Yes (Hospitalization, Other)
  Sender: FDA-Public Use
  Company Number: GB-TEVA-100#03#2008-05515

PATIENT
  Age: 9 Year
  Sex: Male
  Weight: 26 kg

DRUGS (1)
  1. DESMOPRESSIN ACETATE [Suspect]
     Indication: ENURESIS
     Route: 048
     Dates: start: 20080925, end: 20080927

REACTIONS (5)
  - HALLUCINATION [None]
  - HEADACHE [None]
  - LETHARGY [None]
  - THIRST [None]
  - TYPE 1 DIABETES MELLITUS [None]
